FAERS Safety Report 7539984-1 (Version None)
Quarter: 2011Q2

REPORT INFORMATION
  Report Type: 
  Country: None (occurrence: None)
  Receive Date: 20110610
  Receipt Date: 20110601
  Transmission Date: 20111010
  Serious: Yes (Death, Hospitalization)
  Sender: FDA-Public Use
  Company Number: TW-ACTELION-A-CH2009-31701

PATIENT
  Sex: Male
  Weight: 68 kg

DRUGS (2)
  1. TRACLEER [Suspect]
     Dosage: 62.5 MG, BID
     Route: 048
     Dates: start: 20050915, end: 20051014
  2. TRACLEER [Suspect]
     Indication: PULMONARY ARTERIAL HYPERTENSION
     Dosage: 125 MG, BID
     Route: 048
     Dates: start: 20051015, end: 20110528

REACTIONS (7)
  - RIGHT VENTRICULAR FAILURE [None]
  - PULMONARY ARTERIAL HYPERTENSION [None]
  - OEDEMA PERIPHERAL [None]
  - DISEASE PROGRESSION [None]
  - PERICARDIAL EFFUSION [None]
  - DYSPNOEA EXERTIONAL [None]
  - BRAIN NATRIURETIC PEPTIDE INCREASED [None]
